FAERS Safety Report 9401941 (Version 1)
Quarter: 2013Q3

REPORT INFORMATION
  Report Type: Spontaneous
  Country: US (occurrence: US)
  Receive Date: 20130716
  Receipt Date: 20130716
  Transmission Date: 20140515
  Serious: No
  Sender: FDA-Public Use
  Company Number: US-PFIZER INC-2013206247

PATIENT
  Sex: Female

DRUGS (1)
  1. PROPANOLOL HCL [Suspect]
     Indication: MIGRAINE
     Dosage: ONE 120 MG, CAPSULE EVERY EVENING
     Route: 048
     Dates: start: 201304

REACTIONS (2)
  - Headache [Not Recovered/Not Resolved]
  - Feeling abnormal [Unknown]
